FAERS Safety Report 18035800 (Version 1)
Quarter: 2020Q3

REPORT INFORMATION
  Report Type: Spontaneous
  Country: US (occurrence: US)
  Receive Date: 20200716
  Receipt Date: 20200716
  Transmission Date: 20201103
  Serious: Yes (Life-Threatening)
  Sender: FDA-Public Use
  Company Number: None

PATIENT
  Age: 82 Year
  Sex: Male
  Weight: 106 kg

DRUGS (1)
  1. HEPARIN (HEPARIN CA 25000UNT/ML INJ) [Suspect]
     Active Substance: HEPARIN CALCIUM
     Indication: ATRIAL FIBRILLATION
     Dosage: ?          OTHER DOSE:18 UNITS;OTHER ROUTE:IV?
     Dates: start: 20181005, end: 20181013

REACTIONS (11)
  - Nausea [None]
  - Anaemia [None]
  - Jaundice [None]
  - Melaena [None]
  - Bradycardia [None]
  - Haemoglobin decreased [None]
  - Gastric haemorrhage [None]
  - Vomiting [None]
  - Hypotension [None]
  - Hallucination [None]
  - Mass [None]

NARRATIVE: CASE EVENT DATE: 20181012
